FAERS Safety Report 19923584 (Version 2)
Quarter: 2021Q4

REPORT INFORMATION
  Report Type: Report from Study
  Country: US (occurrence: US)
  Receive Date: 20211006
  Receipt Date: 20211227
  Transmission Date: 20220304
  Serious: Yes (Other)
  Sender: FDA-Public Use
  Company Number: US-AMGEN-USASL2021151597

PATIENT
  Age: 52 Year
  Sex: Male

DRUGS (1)
  1. ENBREL [Suspect]
     Active Substance: ETANERCEPT
     Indication: Psoriatic arthropathy
     Dosage: 50 MILLIGRAM, QWK
     Route: 065

REACTIONS (7)
  - Nephrolithiasis [Not Recovered/Not Resolved]
  - Injection site pain [Unknown]
  - Injection site reaction [Not Recovered/Not Resolved]
  - COVID-19 [Unknown]
  - Wrong technique in product usage process [Unknown]
  - C-reactive protein increased [Unknown]
  - Arthralgia [Unknown]

NARRATIVE: CASE EVENT DATE: 20210901
